FAERS Safety Report 7765854-X (Version None)
Quarter: 2011Q3

REPORT INFORMATION
  Report Type: 
  Country: None (occurrence: None)
  Receive Date: 20110921
  Receipt Date: 20110916
  Transmission Date: 20111222
  Serious: Yes (Hospitalization, Other)
  Sender: FDA-Public Use
  Company Number: US-ABBOTT-11P-163-0855401-00

PATIENT
  Sex: Male
  Weight: 112.59 kg

DRUGS (8)
  1. SIMVASTATIN [Concomitant]
     Indication: BLOOD CHOLESTEROL INCREASED
  2. HUMIRA [Suspect]
     Indication: PSORIATIC ARTHROPATHY
     Dates: start: 20080101
  3. INSULIN [Concomitant]
     Indication: DIABETES MELLITUS
  4. ASPIRIN [Concomitant]
     Indication: CARDIAC DISORDER
  5. MS CONTIN [Concomitant]
     Indication: NEUROPATHY PERIPHERAL
  6. EYE DROPS [Concomitant]
     Indication: GLAUCOMA
  7. LEVOTHYROXINE SODIUM [Concomitant]
     Indication: HYPOTHYROIDISM
  8. ALLOPURINOL [Concomitant]
     Indication: GOUT

REACTIONS (4)
  - DIARRHOEA [None]
  - COLON CANCER [None]
  - CHEST PAIN [None]
  - STENT PLACEMENT [None]
